FAERS Safety Report 5246388-3 (Version None)
Quarter: 2007Q1

REPORT INFORMATION
  Report Type: 
  Country: None (occurrence: None)
  Receive Date: 20070226
  Receipt Date: 20070214
  Transmission Date: 20070707
  Serious: Yes (Hospitalization)
  Sender: FDA-Public Use
  Company Number: HQWYE682314FEB07

PATIENT
  Age: 80 Year
  Sex: Female

DRUGS (21)
  1. INIPOMP [Suspect]
     Dosage: ^DF^
     Route: 048
     Dates: start: 20061129, end: 20061216
  2. DI-ANTALVIC [Suspect]
     Route: 048
     Dates: start: 20061129, end: 20061216
  3. RISPERDAL [Suspect]
     Route: 048
     Dates: start: 20060615, end: 20061216
  4. CHONDROSULF [Suspect]
     Route: 048
     Dates: start: 20060615, end: 20061216
  5. LOVENOX [Suspect]
     Route: 058
     Dates: start: 20061129, end: 20061216
  6. ARICEPT [Suspect]
     Route: 048
     Dates: start: 20060615, end: 20061216
  7. ACUPAN [Suspect]
     Dosage: 20 MG, FREQUENCY UNKNOWN
     Route: 042
     Dates: start: 20061130, end: 20061216
  8. ZOFRAN [Suspect]
     Dosage: 2 MG EVERY 1 TOT
     Route: 042
     Dates: start: 20061129, end: 20061129
  9. SUFENTA [Suspect]
     Dosage: 10 UG EVERY 1 TOT
     Route: 042
     Dates: start: 20061129, end: 20061129
  10. DIPRIVAN [Suspect]
     Dosage: 100 MG EVERY 1 TOT
     Route: 042
     Dates: start: 20061129, end: 20061129
  11. PRIMPERAN [Concomitant]
     Dosage: UNKNOWN
  12. PARIET [Concomitant]
     Dosage: ^DF^
     Route: 048
  13. PARACETAMOL [Concomitant]
     Dosage: UNKNOWN
  14. CEFAMANDOLE NAFATE [Concomitant]
     Dosage: UNKNOWN
  15. DAFALGAN [Concomitant]
     Route: 048
  16. SUCRALFATE [Concomitant]
     Dosage: ^DF^
     Route: 048
  17. CLAVULANATE POTASSIUM [Concomitant]
     Dosage: ^DF^
     Route: 042
  18. TICARCILLIN [Concomitant]
     Dosage: ^DF^
     Route: 042
  19. GRANOCYTE [Concomitant]
     Dosage: UNKNOWN
  20. TEICOPLANIN [Concomitant]
     Dosage: UNKNOWN
  21. DEXTRARINE PHENYLBUTAZONE [Suspect]
     Dosage: ^DF^
     Route: 061
     Dates: start: 20061015, end: 20061216

REACTIONS (2)
  - AGRANULOCYTOSIS [None]
  - ANAEMIA [None]
